FAERS Safety Report 7806085-4 (Version None)
Quarter: 2011Q4

REPORT INFORMATION
  Report Type: 
  Country: None (occurrence: None)
  Receive Date: 20111011
  Receipt Date: 20111004
  Transmission Date: 20120403
  Serious: Yes (Hospitalization)
  Sender: FDA-Public Use
  Company Number: US-UCBSA-035468

PATIENT
  Age: 52 Year
  Sex: Male

DRUGS (5)
  1. FENOFIBRATE [Concomitant]
     Indication: BLOOD CHOLESTEROL INCREASED
     Route: 048
     Dates: end: 20110602
  2. CLOPIDOGREL [Concomitant]
     Route: 048
  3. LACOSAMIDE [Suspect]
     Indication: COMPLEX PARTIAL SEIZURES
     Route: 048
     Dates: start: 20101205
  4. ASPIRIN [Concomitant]
     Dosage: PT STATED MED ONGOING BUT STOPPED X 2 WEEKS DUE TO SWALLING DIFFICULTY
     Route: 048
  5. CARVEDILOL [Concomitant]
     Indication: HEART RATE IRREGULAR
     Route: 048

REACTIONS (4)
  - OESOPHAGEAL OEDEMA [None]
  - DYSPHAGIA [None]
  - GASTRITIS [None]
  - THINKING ABNORMAL [None]
